FAERS Safety Report 5020664-1 (Version None)
Quarter: 2006Q2

REPORT INFORMATION
  Report Type: 
  Country: None (occurrence: None)
  Receive Date: 20060602
  Receipt Date: 20060515
  Transmission Date: 20061013
  Serious: Yes (Disabling, Other)
  Sender: FDA-Public Use
  Company Number: US200604001980

PATIENT
  Age: 70 Year
  Sex: Female

DRUGS (7)
  1. EVISTA [Suspect]
     Indication: OSTEOPOROSIS
     Dosage: 60 MG, ORAL
     Route: 048
  2. VITAMINS [Concomitant]
  3. ALTACE [Concomitant]
  4. FOLIC ACID [Concomitant]
  5. VITAMIN B COMPLEX (CALCIUM PANTOTHENATE, NICOTINAMIDE, PYRIDOXINE HYDR [Concomitant]
  6. ASPIRIN [Concomitant]
  7. ADVIL [Concomitant]

REACTIONS (9)
  - ANKLE FRACTURE [None]
  - ARTHRITIS [None]
  - CONTUSION [None]
  - FALL [None]
  - HYPERTENSION [None]
  - IMMOBILE [None]
  - JOINT INJURY [None]
  - PHARMACEUTICAL PRODUCT COMPLAINT [None]
  - VARICOSE VEIN [None]
